FAERS Safety Report 9036891 (Version 1)
Quarter: 2012Q4

REPORT INFORMATION
  Report Type: Spontaneous
  Country: US (occurrence: None)
  Receive Date: 20121221
  Receipt Date: 20121221
  Transmission Date: 20130627
  Serious: Yes (Hospitalization)
  Sender: FDA-Public Use
  Company Number: 2012PROUSA02371

PATIENT
  Age: 79 Year
  Sex: Male

DRUGS (3)
  1. PROVENGE [Suspect]
     Indication: PROSTATE CANCER METASTATIC
     Route: 042
     Dates: start: 20121130, end: 20121130
  2. PROVENGE [Suspect]
     Indication: PROSTATE CANCER METASTATIC
     Route: 042
     Dates: start: 20121207, end: 20121207
  3. PROVENGE [Suspect]
     Indication: PROSTATE CANCER METASTATIC
     Route: 042
     Dates: start: 20121214, end: 20121214

REACTIONS (1)
  - Transient ischaemic attack [None]
